FAERS Safety Report 9233527 (Version 1)
Quarter: 2013Q2

REPORT INFORMATION
  Report Type: Spontaneous
  Country: US (occurrence: None)
  Receive Date: 20130412
  Receipt Date: 20130412
  Transmission Date: 20140414
  Serious: Yes (Hospitalization)
  Sender: FDA-Public Use
  Company Number: NSR_01109_2013

PATIENT
  Age: 65 Year
  Sex: Male

DRUGS (5)
  1. TRAMADOL [Suspect]
     Indication: BACK PAIN
  2. KETOROLAC [Suspect]
     Route: 042
  3. HYDROCODONE [Suspect]
     Indication: BACK PAIN
     Dosage: (DF)
  4. MORPHINE [Suspect]
     Indication: BACK PAIN
     Dosage: (DF)
  5. CORTICOSTEROIDS [Concomitant]

REACTIONS (4)
  - Hyponatraemia [None]
  - Agitation [None]
  - Confusional state [None]
  - Inappropriate antidiuretic hormone secretion [None]
